FAERS Safety Report 9744146 (Version 1)
Quarter: 2013Q4

REPORT INFORMATION
  Report Type: Other
  Country: JP (occurrence: JP)
  Receive Date: 20131210
  Receipt Date: 20131210
  Transmission Date: 20140711
  Serious: Yes (Other)
  Sender: FDA-Public Use
  Company Number: JP-BRISTOL-MYERS SQUIBB COMPANY-19886860

PATIENT
  Age: 55 Year
  Sex: Male

DRUGS (1)
  1. KENACORT-A INJ [Suspect]
     Indication: ANASTOMOTIC STENOSIS

REACTIONS (1)
  - Oesophageal perforation [Unknown]
